FAERS Safety Report 5392421-8 (Version None)
Quarter: 2007Q3

REPORT INFORMATION
  Report Type: 
  Country: None (occurrence: None)
  Receive Date: 20070720
  Receipt Date: 20070718
  Transmission Date: 20080115
  Serious: Yes (Life-Threatening)
  Sender: FDA-Public Use
  Company Number: B0479501A

PATIENT
  Age: 77 Year
  Sex: Female

DRUGS (6)
  1. PAXIL [Suspect]
     Indication: DEPRESSION
     Dosage: 10MG PER DAY
     Route: 048
     Dates: start: 20070501, end: 20070711
  2. MICARDIS [Concomitant]
     Route: 048
  3. ALLOPURINOL [Concomitant]
     Route: 048
  4. ZANTAC 150 [Concomitant]
     Route: 065
  5. PURSENNID [Concomitant]
     Route: 048
  6. CNS STIMULANT-UNKNOWN [Concomitant]
     Route: 048

REACTIONS (1)
  - ACUTE HEPATIC FAILURE [None]
